FAERS Safety Report 8287167-2 (Version None)
Quarter: 2012Q2

REPORT INFORMATION
  Report Type: 
  Country: None (occurrence: None)
  Receive Date: 20120416
  Receipt Date: 20120411
  Transmission Date: 20120825
  Serious: Yes (Hospitalization)
  Sender: FDA-Public Use
  Company Number: IT-ROCHE-1058944

PATIENT
  Sex: Female

DRUGS (2)
  1. XELODA [Suspect]
     Indication: ADENOCARCINOMA
     Route: 048
     Dates: start: 20120316, end: 20120330
  2. LEVOTHYROXINE SODIUM [Concomitant]

REACTIONS (3)
  - ABDOMINAL PAIN UPPER [None]
  - PANCREATITIS [None]
  - HYPERLIPIDAEMIA [None]
